FAERS Safety Report 25776768 (Version 1)
Quarter: 2025Q3

REPORT INFORMATION
  Report Type: Spontaneous
  Country: US (occurrence: US)
  Receive Date: 20250909
  Receipt Date: 20250909
  Transmission Date: 20251020
  Serious: No
  Sender: DOMPE FARMACEUTICI
  Company Number: US-FARMAPROD-202503-0918

PATIENT
  Sex: Female

DRUGS (18)
  1. OXERVATE [Suspect]
     Active Substance: CENEGERMIN-BKBJ
     Indication: Neurotrophic keratopathy
     Route: 047
     Dates: start: 20250123
  2. IVIZIA [Concomitant]
     Active Substance: POVIDONE
  3. CARBOXYMETHYLCELLULOSE [Concomitant]
     Active Substance: CARBOXYMETHYLCELLULOSE
  4. VITAMIN B12 W/VITAMIN B6/FOLIC ACID [Concomitant]
  5. MULTIVITAMIN 50 PLUS [Concomitant]
  6. PEG 3350- ELECTROLYTE [Concomitant]
  7. HUMALOG [Concomitant]
     Active Substance: INSULIN LISPRO
  8. PREGABALIN [Concomitant]
     Active Substance: PREGABALIN
  9. GABAPENTIN [Concomitant]
     Active Substance: GABAPENTIN
  10. LEVOTHYROXINE SODIUM [Concomitant]
     Active Substance: LEVOTHYROXINE SODIUM
  11. INSULIN GLARGINE SOLOSTAR [Concomitant]
     Active Substance: INSULIN GLARGINE
  12. LORATADINE [Concomitant]
     Active Substance: LORATADINE
  13. CYCLOSPORINE [Concomitant]
     Active Substance: CYCLOSPORINE
  14. LINZESS [Concomitant]
     Active Substance: LINACLOTIDE
  15. IBUPROFEN [Concomitant]
     Active Substance: IBUPROFEN
  16. ACETAMINOPHEN [Concomitant]
     Active Substance: ACETAMINOPHEN
  17. GLUCAGON [Concomitant]
     Active Substance: GLUCAGON
  18. ROSUVASTATIN CALCIUM [Concomitant]
     Active Substance: ROSUVASTATIN CALCIUM

REACTIONS (1)
  - Visual impairment [Unknown]
